FAERS Safety Report 9265579 (Version 3)
Quarter: 2013Q2

REPORT INFORMATION
  Report Type: Spontaneous
  Country: JP (occurrence: JP)
  Receive Date: 20130501
  Receipt Date: 20130530
  Transmission Date: 20140414
  Serious: Yes (Other)
  Sender: FDA-Public Use
  Company Number: JP-OTSUKA-JP-2013-11179

PATIENT
  Sex: Female

DRUGS (1)
  1. BUSULFEX [Suspect]
     Dosage: UNK
     Route: 041

REACTIONS (2)
  - Engraft failure [Unknown]
  - Drug ineffective [Unknown]
